FAERS Safety Report 18575295 (Version 1)
Quarter: 2020Q4

REPORT INFORMATION
  Report Type: Report from Study
  Country: NL (occurrence: NL)
  Receive Date: 20201203
  Receipt Date: 20201203
  Transmission Date: 20210114
  Serious: Yes (Hospitalization)
  Sender: FDA-Public Use
  Company Number: NL-TEVA-2020-NL-1854351

PATIENT
  Age: 58 Year
  Sex: Female

DRUGS (21)
  1. PREDNISOLON TABLET 20MG / PREDNISOLON AUROBINDO TABLET 20MG - NON-CURR [Concomitant]
     Dates: start: 20050630, end: 20050715
  2. MICONAZOL CREME 20MG/G / MICONAZOLNITRAAT A HYDROFIELE CREME 20MG/G - [Concomitant]
     Dosage: THERAPY END DATE : ASKU
     Dates: start: 20050815
  3. METHYLCELLULOSE OOGDRUPPELS  5MG/ML / METHYLCELLULOSE THEA OOGDR 0,5% [Concomitant]
     Dosage: THERAPY END DATE : ASKU
     Dates: start: 20050804
  4. DEXTRAN 70/HYPROMELLOSE OOGDR 1/3MG/ML / DURATEARS OOGDRUPPELS FLACON [Concomitant]
     Dosage: THERAPY END DATE : ASKU
     Dates: start: 20050902
  5. DOXORUBICINE INJVLST 2MG/ML / DOXORUBIN INJVLST 2MG/ML FLACON 100ML - [Concomitant]
     Dosage: THERAPY END DATE : ASKU
     Dates: start: 20050705
  6. VINCRISTINE INJVLST 1MG/ML / VINCRISTINESULFAAT PCH INJVLST 1MG/ML FLA [Concomitant]
     Dosage: THERAPY END DATE : ASKU
     Dates: start: 20050705
  7. LIDOCAINE DRANK 20MG/ML (HCL) - NON-CURRENT DRUG / XYLOCAINE VISKEUS 2 [Concomitant]
     Dosage: THERAPY END DATE : ASKU
     Dates: start: 20050824
  8. PANTOPRAZOL TABLET MSR 40MG / PANTOZOL TABLET MSR 40MG [Concomitant]
     Dosage: THERAPY END DATE : ASKU
     Dates: start: 20050902
  9. CYCLOFOSFAMIDE INJECTIEPOEDER 1000MG / ENDOXAN INJECTIEPOEDER FLACON 1 [Suspect]
     Active Substance: CYCLOPHOSPHAMIDE
     Dosage: THERAPY START DATE AND END DATE : ASKU, UNIT DOSE : 1 DOSAGE FORMS
  10. NYSTATINE SUSP ORAAL 100.000E/ML / NYSTATINE LABAZ SUSPENSIE 100.000E/ [Concomitant]
     Dosage: THERAPY END DATE : ASKU
     Dates: start: 20050809
  11. CYCLOFOSFAMIDE INJECTIEPOEDER 1000MG / ENDOXAN INJECTIEPOEDER FLACON 1 [Concomitant]
     Dosage: THERAPY END DATE : ASKU
     Dates: start: 20050705
  12. MAGNESIUMOXIDE KAUWTABLET 500MG - NON-CURRENT DRUG / MAGNESIUMOXIDE RP [Concomitant]
     Dosage: THERAPY END DATE : ASKU
     Dates: start: 20050630
  13. GRANISETRON TABLET 1MG / KYTRIL TABLET 1MG [Concomitant]
     Dates: start: 20050630, end: 20050710
  14. RITUXIMAB INFOPL CONC 10MG/ML / MABTHERA INFVLST CONCENTRAAT 10MG/ML F [Concomitant]
     Dosage: THERAPY END DATE : ASKU
     Dates: start: 20050705
  15. DARBEPOETINE ALFA INJVLST 500UG/ML / ARANESP  500 INJVLST 500MCG/ML WW [Concomitant]
     Dosage: THERAPY END DATE : ASKU
     Dates: start: 20050819
  16. VINCRISTINE INJVLST 1MG/ML / VINCRISTINE MAYNE INJVLST 1MG/ML FL 2ML O [Suspect]
     Active Substance: VINCRISTINE SULFATE
     Dosage: THERAPY START DATE AND END DATE : ASKU, UNIT DOSE : 1 DOSAGE FORMS
  17. DICLOFENAC-NATRIUM TABLET MSR 50MG / DICLOFENAC NATRIUM A TABLET MSR [Concomitant]
     Dosage: THERAPY END DATE : ASKU
     Dates: start: 20050824
  18. METOCLOPRAMIDE TABLET 10MG / METOCLOPRAMIDE HCL AUROBINDO TABLET 10MG [Concomitant]
     Dosage: THERAPY END DATE : ASKU
     Dates: start: 20050630
  19. DOXORUBICINE INJVLST 2MG/ML / DOXORUBICINE HCL EURO INFVLST CONC 2MG/M [Suspect]
     Active Substance: DOXORUBICIN HYDROCHLORIDE
     Dosage: THERAPY START DATE AND END DATE : ASKU, UNIT DOSE : 1 DOSAGE FORMS
  20. MABTHERA [Suspect]
     Active Substance: RITUXIMAB
     Dosage: THERAPY START DATE AND END DATE : ASKU, UNIT DOSE : 1 DOSAGE FORMS
  21. TRAMADOL CAPSULE 50MG / TRAMADOL HCL A CAPSULE 50MG - NON-CURRENT DRUG [Concomitant]
     Dosage: THERAPY END DATE : ASKU
     Dates: start: 20050902

REACTIONS (2)
  - Pneumonia pseudomonal [Recovered/Resolved with Sequelae]
  - Liver disorder [Recovered/Resolved with Sequelae]
